FAERS Safety Report 7397828-5 (Version None)
Quarter: 2011Q2

REPORT INFORMATION
  Report Type: 
  Country: None (occurrence: None)
  Receive Date: 20110401
  Receipt Date: 20110401
  Transmission Date: 20111010
  Serious: Yes (Hospitalization)
  Sender: FDA-Public Use
  Company Number: None

PATIENT
  Age: 61 Year
  Sex: Female
  Weight: 122.4712 kg

DRUGS (3)
  1. CYTOXAN [Suspect]
     Indication: BREAST CANCER
     Dosage: 600MG/M2
     Dates: start: 20110105, end: 20110303
  2. NEULASTA [Concomitant]
  3. ADRIAMYCIN PFS [Suspect]
     Indication: BREAST CANCER
     Dosage: 60MG/M2
     Dates: start: 20110105, end: 20110303

REACTIONS (3)
  - RENAL FAILURE ACUTE [None]
  - URINARY RETENTION [None]
  - DIALYSIS [None]
